FAERS Safety Report 7771833-9 (Version None)
Quarter: 2011Q3

REPORT INFORMATION
  Report Type: 
  Country: None (occurrence: None)
  Receive Date: 20110921
  Receipt Date: 20110921
  Transmission Date: 20111222
  Serious: Yes (Hospitalization)
  Sender: FDA-Public Use
  Company Number: None

PATIENT
  Sex: Female
  Weight: 55.3 kg

DRUGS (1)
  1. PACLITAXEL [Suspect]
     Dosage: 384 MG
     Dates: end: 20110914

REACTIONS (4)
  - VENTRICULAR FIBRILLATION [None]
  - HYPOTENSION [None]
  - HAEMATEMESIS [None]
  - PULSE ABSENT [None]
